FAERS Safety Report 17746513 (Version 1)
Quarter: 2020Q2

REPORT INFORMATION
  Report Type: Spontaneous
  Country: FR (occurrence: FR)
  Receive Date: 20200505
  Receipt Date: 20200505
  Transmission Date: 20200714
  Serious: Yes (Other)
  Sender: FDA-Public Use
  Company Number: NVSC2020FR121257

PATIENT
  Age: 7 Month
  Sex: Male

DRUGS (5)
  1. CYTARABINE. [Suspect]
     Active Substance: CYTARABINE
     Indication: LANGERHANS^ CELL HISTIOCYTOSIS
     Dosage: UNK
     Route: 065
  2. PREDNISOLONE. [Suspect]
     Active Substance: PREDNISOLONE
     Indication: LANGERHANS^ CELL HISTIOCYTOSIS
     Dosage: UNK UNK, QD
     Route: 065
  3. VINBLASTINE SULFATE. [Suspect]
     Active Substance: VINBLASTINE SULFATE
     Indication: LANGERHANS^ CELL HISTIOCYTOSIS
     Dosage: UNK UNK, QW
     Route: 065
  4. VINCRISTINE [Suspect]
     Active Substance: VINCRISTINE
     Indication: LANGERHANS^ CELL HISTIOCYTOSIS
     Dosage: UNK
     Route: 065
  5. VEMURAFENIB. [Suspect]
     Active Substance: VEMURAFENIB
     Indication: LANGERHANS^ CELL HISTIOCYTOSIS
     Dosage: 20 MG/KG, QD
     Route: 048

REACTIONS (2)
  - Treatment failure [Unknown]
  - Off label use [Unknown]
